FAERS Safety Report 6482797-2 (Version None)
Quarter: 2009Q4

REPORT INFORMATION
  Report Type: 
  Country: None (occurrence: None)
  Receive Date: 20091204
  Receipt Date: 20091123
  Transmission Date: 20100525
  Serious: Yes (Death, Hospitalization)
  Sender: FDA-Public Use
  Company Number: 91539

PATIENT
  Age: 42 Year
  Sex: Female

DRUGS (2)
  1. METHYLPREDNISOLONE SODIUM SUCCINATE [Suspect]
     Indication: RENAL AND PANCREAS TRANSPLANT
     Dosage: 20MG/DAY
  2. AZATHIOPRINE SODIUM [Suspect]
     Indication: RENAL AND PANCREAS TRANSPLANT
     Dosage: 75 MG/DAY

REACTIONS (7)
  - CYTOMEGALOVIRUS INFECTION [None]
  - DUODENITIS [None]
  - HAEMATOCRIT DECREASED [None]
  - PETECHIAE [None]
  - PURPURA [None]
  - STRONGYLOIDIASIS [None]
  - URINARY TRACT INFECTION [None]
